FAERS Safety Report 5958688-X (Version None)
Quarter: 2008Q4

REPORT INFORMATION
  Report Type: 
  Country: None (occurrence: None)
  Receive Date: 20081110
  Receipt Date: 20081001
  Transmission Date: 20090506
  Serious: No
  Sender: FDA-Public Use
  Company Number: 2008US002657

PATIENT
  Age: 76 Year
  Sex: Female
  Weight: 51.7 kg

DRUGS (6)
  1. LEXISCAN [Suspect]
     Indication: CHEST PAIN
     Dosage: IV NOS
     Route: 042
     Dates: start: 20080911, end: 20080911
  2. ASPIRIN [Concomitant]
  3. GLUCOVANCE [Concomitant]
  4. LIPITOR [Concomitant]
  5. LISINOPRIL [Concomitant]
  6. METOPROLOL TARTRATE [Concomitant]

REACTIONS (3)
  - AGITATION [None]
  - BONE DISORDER [None]
  - MYALGIA [None]
